FAERS Safety Report 9739475 (Version 1)
Quarter: 2013Q4

REPORT INFORMATION
  Report Type: Spontaneous
  Country: US (occurrence: US)
  Receive Date: 20131209
  Receipt Date: 20131209
  Transmission Date: 20140711
  Serious: No
  Sender: FDA-Public Use
  Company Number: US-009507513-1312USA003119

PATIENT
  Sex: Female

DRUGS (1)
  1. JANUMET XR [Suspect]
     Dosage: ONE HALF TABLET PER DAY
     Route: 048

REACTIONS (4)
  - Headache [Unknown]
  - Diarrhoea [Unknown]
  - Abdominal pain upper [Unknown]
  - Wrong technique in drug usage process [Unknown]
